FAERS Safety Report 5521722-5 (Version None)
Quarter: 2007Q4

REPORT INFORMATION
  Report Type: 
  Country: None (occurrence: None)
  Receive Date: 20071120
  Receipt Date: 20071113
  Transmission Date: 20080405
  Serious: Yes (Other)
  Sender: FDA-Public Use
  Company Number: PHNR2007AU02090

PATIENT
  Sex: Male

DRUGS (2)
  1. ACETAMINOPHEN W/ CODEINE [Concomitant]
     Dosage: MAXIMUM DOSE
  2. VOLTAREN [Suspect]
     Dosage: 2 WEEKS, 1-2 TABLETS EVERY 8 HOURS

REACTIONS (2)
  - CARTILAGE INJURY [None]
  - KNEE OPERATION [None]
